FAERS Safety Report 13176387 (Version 1)
Quarter: 2017Q1

REPORT INFORMATION
  Report Type: Spontaneous
  Country: US (occurrence: US)
  Receive Date: 20170201
  Receipt Date: 20170201
  Transmission Date: 20170428
  Serious: No
  Sender: FDA-Public Use
  Company Number: US-SAGENTPRD-2017-US-000010

PATIENT
  Sex: 0

DRUGS (1)
  1. OCTREOTIDE ACETATE INJECTION [Suspect]
     Active Substance: OCTREOTIDE ACETATE
     Dosage: UNKNOWN

REACTIONS (1)
  - Cholelithiasis [Unknown]
